FAERS Safety Report 14952213 (Version 1)
Quarter: 2018Q2

REPORT INFORMATION
  Report Type: Spontaneous
  Country: CA (occurrence: CA)
  Receive Date: 20180530
  Receipt Date: 20180530
  Transmission Date: 20180711
  Serious: Yes (Other)
  Sender: FDA-Public Use
  Company Number: CA-ROCHE-2130970

PATIENT
  Sex: Female
  Weight: 105 kg

DRUGS (11)
  1. ORENCIA [Suspect]
     Active Substance: ABATACEPT
     Indication: PRODUCT USED FOR UNKNOWN INDICATION
     Route: 065
  2. DOXYCYCLINE. [Concomitant]
     Active Substance: DOXYCYCLINE
  3. ACTEMRA [Suspect]
     Active Substance: TOCILIZUMAB
     Indication: PRODUCT USED FOR UNKNOWN INDICATION
     Route: 065
  4. PREDNISONE. [Concomitant]
     Active Substance: PREDNISONE
  5. CELEBREX [Concomitant]
     Active Substance: CELECOXIB
  6. HYDROMORPH CONTIN [Concomitant]
     Active Substance: HYDROMORPHONE
  7. INFLECTRA [Concomitant]
     Active Substance: INFLIXIMAB-DYYB
  8. IMURAN [Concomitant]
     Active Substance: AZATHIOPRINE
  9. GABAPENTIN. [Concomitant]
     Active Substance: GABAPENTIN
  10. ENBREL [Suspect]
     Active Substance: ETANERCEPT
     Indication: PRODUCT USED FOR UNKNOWN INDICATION
     Route: 065
  11. KEFLEX [Concomitant]
     Active Substance: CEPHALEXIN

REACTIONS (3)
  - Treatment failure [Unknown]
  - Immunoglobulins decreased [Unknown]
  - Bronchomalacia [Unknown]
